FAERS Safety Report 5427529-1 (Version None)
Quarter: 2007Q3

REPORT INFORMATION
  Report Type: 
  Country: None (occurrence: None)
  Receive Date: 20070828
  Receipt Date: 20070813
  Transmission Date: 20080115
  Serious: Yes (Hospitalization)
  Sender: FDA-Public Use
  Company Number: 2007-162895-NL

PATIENT
  Age: 79 Year
  Sex: Female

DRUGS (9)
  1. MIRTAZAPINE [Suspect]
     Dosage: 15 MG
     Dates: start: 20070705, end: 20070723
  2. ALPRAZOLAM [Suspect]
     Dosage: 0.5 MG
     Dates: start: 20070705, end: 20070723
  3. MEMANTINE HCL [Suspect]
     Indication: DEMENTIA ALZHEIMER'S TYPE
     Dosage: 15 MG
     Route: 048
     Dates: start: 20070705, end: 20070723
  4. MEPROBAMATE [Concomitant]
  5. ZOPICLONE [Concomitant]
  6. HALOPERIDOL [Concomitant]
  7. TRIMEBUTINE [Concomitant]
  8. RIVASTIGMINE TARTRATE [Concomitant]
  9. CITALOPRAM HYDROBROMIDE [Concomitant]

REACTIONS (3)
  - GLOMERULONEPHRITIS [None]
  - HYPERTENSION [None]
  - RENAL FAILURE ACUTE [None]
